FAERS Safety Report 11437753 (Version 2)
Quarter: 2015Q3

REPORT INFORMATION
  Report Type: Spontaneous
  Country: US (occurrence: US)
  Receive Date: 20150831
  Receipt Date: 20150921
  Transmission Date: 20151125
  Serious: No
  Sender: FDA-Public Use
  Company Number: US-GLAXOSMITHKLINE-US2015123340

PATIENT
  Age: 56 Year

DRUGS (8)
  1. XANAX [Concomitant]
     Active Substance: ALPRAZOLAM
  2. VENTOLIN [Concomitant]
     Active Substance: ALBUTEROL SULFATE
  3. LAMICTAL XR [Concomitant]
     Active Substance: LAMOTRIGINE
  4. ADVAIR DISKUS [Suspect]
     Active Substance: FLUTICASONE PROPIONATE\SALMETEROL XINAFOATE
     Indication: CHRONIC OBSTRUCTIVE PULMONARY DISEASE
     Dosage: 1 PUFF(S), BID
     Route: 055
     Dates: start: 2012
  5. PAXIL [Concomitant]
     Active Substance: PAROXETINE HYDROCHLORIDE
  6. PERCOCET [Concomitant]
     Active Substance: ACETAMINOPHEN\OXYCODONE HYDROCHLORIDE
  7. VENTOLIN HFA [Concomitant]
     Active Substance: ALBUTEROL SULFATE
  8. LAMICTAL [Concomitant]
     Active Substance: LAMOTRIGINE

REACTIONS (3)
  - Dyspnoea [Not Recovered/Not Resolved]
  - Musculoskeletal chest pain [Recovering/Resolving]
  - Cough [Not Recovered/Not Resolved]

NARRATIVE: CASE EVENT DATE: 201507
